FAERS Safety Report 21262024 (Version 3)
Quarter: 2023Q2

REPORT INFORMATION
  Report Type: Spontaneous
  Country: GB (occurrence: GB)
  Receive Date: 20220827
  Receipt Date: 20230503
  Transmission Date: 20230722
  Serious: Yes (Hospitalization, Other)
  Sender: FDA-Public Use
  Company Number: GB-AMGEN-GBRSP2022143217

PATIENT
  Age: 66 Year
  Sex: Male
  Weight: 104 kg

DRUGS (12)
  1. ADALIMUMAB [Suspect]
     Active Substance: ADALIMUMAB
     Indication: Psoriasis
     Dosage: 40 MILLIGRAM, Q3WK
     Route: 065
     Dates: start: 20190529, end: 20230404
  2. ADALIMUMAB [Suspect]
     Active Substance: ADALIMUMAB
     Dosage: 40 MILLIGRAM, Q2WK
     Route: 065
     Dates: start: 20230405
  3. LORAZEPAM [Concomitant]
     Active Substance: LORAZEPAM
     Dosage: UNK
     Dates: start: 19961208
  4. THYROXINE [Concomitant]
     Active Substance: LEVOTHYROXINE
     Dosage: UNK
     Dates: start: 20110117
  5. CODEINE [Concomitant]
     Active Substance: CODEINE
     Dosage: UNK
     Dates: start: 20180201
  6. MORPHINE SULFATE [Concomitant]
     Active Substance: MORPHINE SULFATE
     Dosage: UNK
     Dates: start: 20180201
  7. BETAMETHASONE DIPROPIONATE\CLOTRIMAZOLE [Concomitant]
     Active Substance: BETAMETHASONE DIPROPIONATE\CLOTRIMAZOLE
     Dosage: UNK
     Dates: start: 20230404
  8. IBUPROFEN [Concomitant]
     Active Substance: IBUPROFEN
  9. COVID-19 vaccine [Concomitant]
     Dosage: UNK
     Dates: start: 20210129, end: 20210129
  10. COVID-19 vaccine [Concomitant]
     Dosage: UNK
     Dates: start: 20210521, end: 20210521
  11. COVID-19 vaccine [Concomitant]
     Dosage: UNK
     Dates: start: 20211220, end: 20211220
  12. INFLUENZA VIRUS VACCINE [Concomitant]
     Active Substance: INFLUENZA VIRUS VACCINE

REACTIONS (15)
  - Hypocalcaemia [Recovered/Resolved]
  - Urosepsis [Recovered/Resolved]
  - Pneumonia [Recovered/Resolved]
  - Cellulitis [Recovered/Resolved]
  - Orchitis [Recovered/Resolved]
  - Acute kidney injury [Recovered/Resolved]
  - Skin ulcer [Recovered/Resolved]
  - Constipation [Recovered/Resolved]
  - Fall [Unknown]
  - Hypophagia [Recovered/Resolved]
  - Joint swelling [Recovered/Resolved]
  - Dermatitis [Recovered/Resolved]
  - Pain in extremity [Recovered/Resolved]
  - Urinary tract infection [Recovered/Resolved]
  - Off label use [Unknown]

NARRATIVE: CASE EVENT DATE: 20190529
